FAERS Safety Report 8795564 (Version 1)
Quarter: 2012Q4

REPORT INFORMATION
  Report Type: 
  Country: US (occurrence: US)
  Receive Date: 20120917
  Receipt Date: 20120917
  Transmission Date: 20130627
  Serious: Yes (Hospitalization, Other)
  Sender: FDA-Public Use
  Company Number: US-009507513-1103USA00914

PATIENT

DRUGS (3)
  1. FOSAMAX [Suspect]
     Indication: OSTEOPOROSIS
     Dosage: 10 mg, UNK
     Route: 048
     Dates: start: 199511, end: 2000
  2. FOSAMAX [Suspect]
     Dosage: 70 mg, UNK
     Route: 048
     Dates: start: 2000, end: 200805
  3. FOSAMAX [Suspect]
     Indication: OSTEOPOROSIS
     Dosage: 70 mg, UNK
     Route: 048
     Dates: start: 200806, end: 201003

REACTIONS (36)
  - Femur fracture [Unknown]
  - Heart rate increased [Unknown]
  - Breast cancer [Unknown]
  - Anaemia postoperative [Not Recovered/Not Resolved]
  - Apnoea [Unknown]
  - Fall [Unknown]
  - Loose tooth [Unknown]
  - Toothache [Unknown]
  - Tooth extraction [Unknown]
  - Vitamin D deficiency [Unknown]
  - Hypertension [Not Recovered/Not Resolved]
  - Hypercholesterolaemia [Not Recovered/Not Resolved]
  - Hormone level abnormal [Unknown]
  - Spinal disorder [Unknown]
  - Anxiety [Unknown]
  - Strabismus [Unknown]
  - Palpitations [Recovered/Resolved]
  - Femur fracture [Unknown]
  - Lymphadenopathy [Unknown]
  - Hiatus hernia [Unknown]
  - Gastric polyps [Unknown]
  - Blood pressure inadequately controlled [Unknown]
  - Spinal osteoarthritis [Not Recovered/Not Resolved]
  - Gait disturbance [Unknown]
  - Electrocardiogram abnormal [Not Recovered/Not Resolved]
  - Tension headache [Unknown]
  - Headache [Unknown]
  - Neck pain [Unknown]
  - Dyspepsia [Unknown]
  - Gastritis [Unknown]
  - Pain in extremity [Unknown]
  - Musculoskeletal discomfort [Unknown]
  - Drug hypersensitivity [Not Recovered/Not Resolved]
  - Drug hypersensitivity [Not Recovered/Not Resolved]
  - Drug hypersensitivity [Unknown]
  - Drug hypersensitivity [Not Recovered/Not Resolved]
